FAERS Safety Report 7024283-7 (Version None)
Quarter: 2010Q4

REPORT INFORMATION
  Report Type: 
  Country: None (occurrence: None)
  Receive Date: 20101001
  Receipt Date: 20100923
  Transmission Date: 20110411
  Serious: Yes (Other)
  Sender: FDA-Public Use
  Company Number: GB-AMGEN-KDL440611

PATIENT
  Sex: Female

DRUGS (4)
  1. NEULASTA [Suspect]
     Indication: CHEMOTHERAPY
     Dates: start: 20100801
  2. FLUOROURACIL [Concomitant]
  3. EPIRUBICIN [Concomitant]
  4. CYCLOPHOSPHAMIDE [Concomitant]

REACTIONS (3)
  - NEUTROPHIL COUNT DECREASED [None]
  - THERAPEUTIC RESPONSE DECREASED [None]
  - WHITE BLOOD CELL COUNT DECREASED [None]
